FAERS Safety Report 4898827-5 (Version None)
Quarter: 2006Q1

REPORT INFORMATION
  Report Type: 
  Country: None (occurrence: None)
  Receive Date: 20060202
  Receipt Date: 20051021
  Transmission Date: 20060701
  Serious: No
  Sender: FDA-Public Use
  Company Number: JP-JPN-A20052529

PATIENT
  Age: 37 Year
  Sex: Female
  Weight: 59.1 kg

DRUGS (9)
  1. VALTREX [Suspect]
     Indication: HERPES ZOSTER
     Dosage: 2TAB THREE TIMES PER DAY
     Route: 048
     Dates: start: 20051003, end: 20051007
  2. PREDONINE [Concomitant]
     Indication: MIXED CONNECTIVE TISSUE DISEASE
     Dosage: 7.5MG PER DAY
     Route: 048
     Dates: start: 19960901
  3. AMLODIN [Concomitant]
     Indication: HYPERTENSION
     Dosage: 2.5MG PER DAY
     Route: 048
     Dates: start: 19960901
  4. JUVELA NICOTINATE [Concomitant]
     Indication: MIXED CONNECTIVE TISSUE DISEASE
     Dosage: 300MG PER DAY
     Route: 048
     Dates: start: 19960901
  5. PROCYLIN [Concomitant]
     Indication: MIXED CONNECTIVE TISSUE DISEASE
     Dosage: 60MCG PER DAY
     Route: 048
     Dates: start: 19960901
  6. GASTER D [Concomitant]
     Indication: MIXED CONNECTIVE TISSUE DISEASE
     Dosage: 40MG PER DAY
     Route: 048
     Dates: start: 19960901
  7. ROCALTROL [Concomitant]
     Indication: MIXED CONNECTIVE TISSUE DISEASE
     Dosage: 1CAP PER DAY
     Route: 048
     Dates: start: 19960901
  8. METHYLCOBAL [Concomitant]
     Indication: HERPES ZOSTER
     Dosage: 6TAB PER DAY
     Route: 048
     Dates: start: 20051004, end: 20051008
  9. ALLEGRA [Concomitant]
     Indication: URTICARIA
     Dosage: 2TAB PER DAY
     Route: 048
     Dates: start: 20051003, end: 20051011

REACTIONS (2)
  - DYSGEUSIA [None]
  - HYPOSMIA [None]
